FAERS Safety Report 8160433-7 (Version None)
Quarter: 2012Q1

REPORT INFORMATION
  Report Type: 
  Country: None (occurrence: None)
  Receive Date: 20120223
  Receipt Date: 20120215
  Transmission Date: 20120608
  Serious: No
  Sender: FDA-Public Use
  Company Number: US-B.I. PHARMACEUTICALS,INC./RIDGEFIELD-2012-BP-02996BP

PATIENT

DRUGS (3)
  1. METFORMIN HCL [Concomitant]
  2. SULFONYLUREA [Concomitant]
  3. TRADJENTA [Suspect]
     Indication: TYPE 2 DIABETES MELLITUS

REACTIONS (2)
  - SLEEP TERROR [None]
  - ABNORMAL DREAMS [None]
